FAERS Safety Report 10676511 (Version 1)
Quarter: 2014Q4

REPORT INFORMATION
  Report Type: Spontaneous
  Country: US (occurrence: US)
  Receive Date: 20141226
  Receipt Date: 20141226
  Transmission Date: 20150529
  Serious: Yes (Hospitalization)
  Sender: FDA-Public Use
  Company Number: US-CIPLA LTD.-2014US02901

PATIENT

DRUGS (2)
  1. PACLITAXEL. [Suspect]
     Active Substance: PACLITAXEL
     Indication: OVARIAN CANCER
     Dosage: 250 MG
  2. CARBOPLATIN. [Suspect]
     Active Substance: CARBOPLATIN
     Indication: OVARIAN CANCER
     Dosage: 1,100 MG IN 250 ML OF SALINE
     Route: 042

REACTIONS (4)
  - Acute kidney injury [Unknown]
  - Hydronephrosis [Recovered/Resolved]
  - Haematuria [Unknown]
  - Ureteric obstruction [Recovered/Resolved]
